FAERS Safety Report 12711766 (Version 1)
Quarter: 2016Q3

REPORT INFORMATION
  Report Type: Spontaneous
  Country: US (occurrence: US)
  Receive Date: 20160902
  Receipt Date: 20160902
  Transmission Date: 20161109
  Serious: Yes (Other)
  Sender: FDA-Public Use
  Company Number: US-PROCTER_AND_GAMBLE-GS16106338

PATIENT
  Age: 60 Year
  Sex: Female

DRUGS (1)
  1. CREST COMPLETE MULTI-BENEFIT TARTAR CONTROL WHITENING PLUS SCOPE [Suspect]
     Active Substance: SODIUM FLUORIDE
     Dosage: NOT MUCH, VERY LITTLE, 2X DAY
     Route: 002
     Dates: start: 20160822, end: 20160823

REACTIONS (5)
  - Mouth swelling [Recovered/Resolved]
  - Swollen tongue [Recovered/Resolved]
  - Throat tightness [Recovered/Resolved]
  - Peripheral swelling [Recovered/Resolved]
  - Pruritus [Recovered/Resolved]

NARRATIVE: CASE EVENT DATE: 20160822
